FAERS Safety Report 4752783-9 (Version None)
Quarter: 2005Q3

REPORT INFORMATION
  Report Type: 
  Country: None (occurrence: None)
  Receive Date: 20050823
  Receipt Date: 20050812
  Transmission Date: 20060218
  Serious: Yes (Other)
  Sender: FDA-Public Use
  Company Number: 2005112686

PATIENT
  Age: 66 Year
  Sex: Female

DRUGS (12)
  1. ZOLOFT [Suspect]
     Indication: ILL-DEFINED DISORDER
     Dosage: 50 MG (50 MG, 1 IN 1 D), ORAL
     Route: 048
     Dates: start: 20050701, end: 20050701
  2. SOCIAN (AMISULPRIDE) [Suspect]
     Indication: ILL-DEFINED DISORDER
     Dosage: 50 MT, ORAL
     Route: 048
     Dates: start: 20050701, end: 20050701
  3. ALL OTHER THERAPEUTIC PRODUCTS (ALL OTHER THERAPEUTIC PRODUCTS) [Concomitant]
  4. INDAPAMIDE [Concomitant]
  5. DILTIAZEM [Concomitant]
  6. MONTELUKAST (MONTELUKAST) [Concomitant]
  7. DESLORATADINE (DESLORATADINE) [Concomitant]
  8. RALOXIFENE HCL [Concomitant]
  9. OXITRIPTAN (OXITRIPTAN) [Concomitant]
  10. GLICLAZIDE (GLICLAZIDE) [Concomitant]
  11. OMEPRAZOLE [Concomitant]
  12. ETHYL LOFLAZEPATE (ETHYL LOFLAZEPATE) [Concomitant]

REACTIONS (3)
  - DRUG TOXICITY [None]
  - HEPATITIS [None]
  - HEPATOMEGALY [None]
